FAERS Safety Report 9321359 (Version 2)
Quarter: 2013Q2

REPORT INFORMATION
  Report Type: Spontaneous
  Country: US (occurrence: US)
  Receive Date: 20130531
  Receipt Date: 20130618
  Transmission Date: 20140414
  Serious: Yes (Other)
  Sender: FDA-Public Use
  Company Number: US-PFIZER INC-2013164677

PATIENT
  Age: 71 Year
  Sex: Female
  Weight: 83.9 kg

DRUGS (2)
  1. CELEBREX [Suspect]
     Indication: ARTHRITIS
     Dosage: 200 MG, 1X/DAY
  2. SAVELLA [Concomitant]
     Indication: FIBROMYALGIA
     Dosage: 50 MG, 2X/DAY

REACTIONS (1)
  - Cardiac disorder [Unknown]
